FAERS Safety Report 17571151 (Version 2)
Quarter: 2020Q2

REPORT INFORMATION
  Report Type: Spontaneous
  Country: FR (occurrence: FR)
  Receive Date: 20200323
  Receipt Date: 20200508
  Transmission Date: 20200713
  Serious: Yes (Other)
  Sender: FDA-Public Use
  Company Number: FR-PFIZER INC-2020116580

PATIENT
  Age: 74 Year
  Sex: Female
  Weight: 75 kg

DRUGS (1)
  1. AROMASINE [Suspect]
     Active Substance: EXEMESTANE
     Indication: BREAST CANCER
     Dosage: 1 DF, 1X/DAY
     Route: 048
     Dates: start: 20190628, end: 20200217

REACTIONS (7)
  - Tendonitis [Recovered/Resolved with Sequelae]
  - Reaction to excipient [Not Recovered/Not Resolved]
  - Weight increased [Not Recovered/Not Resolved]
  - Second primary malignancy [Unknown]
  - Hunger [Not Recovered/Not Resolved]
  - Anal neoplasm [Unknown]
  - Pain [Not Recovered/Not Resolved]

NARRATIVE: CASE EVENT DATE: 20200224
